FAERS Safety Report 25713258 (Version 1)
Quarter: 2025Q3

REPORT INFORMATION
  Report Type: Report from Study
  Country: AU (occurrence: AU)
  Receive Date: 20250822
  Receipt Date: 20250822
  Transmission Date: 20251021
  Serious: Yes (Death)
  Sender: CELLTRION
  Company Number: AU-CELLTRION INC.-2025AU000736

PATIENT

DRUGS (2)
  1. INFLIXIMAB-DYYB [Suspect]
     Active Substance: INFLIXIMAB-DYYB
     Indication: Crohn^s disease
     Dosage: 120 MG, FORTNIGHTLY
     Dates: start: 202307
  2. INFLIXIMAB-DYYB [Suspect]
     Active Substance: INFLIXIMAB-DYYB
     Dosage: 120 MG PRE-FILLED PEN S/C INJECTIONS FORTNIGHTLY
     Route: 058
     Dates: start: 202407

REACTIONS (3)
  - Death [Fatal]
  - Product distribution issue [Unknown]
  - Therapy interrupted [Unknown]

NARRATIVE: CASE EVENT DATE: 20241227
